FAERS Safety Report 7628701-2 (Version None)
Quarter: 2011Q3

REPORT INFORMATION
  Report Type: 
  Country: None (occurrence: None)
  Receive Date: 20110721
  Receipt Date: 20110721
  Transmission Date: 20111222
  Serious: No
  Sender: FDA-Public Use
  Company Number: None

PATIENT
  Age: 68 Year
  Sex: Female

DRUGS (2)
  1. XELODA [Suspect]
     Dosage: 150MG BID PO
     Route: 048
  2. XELODA [Suspect]
     Indication: BREAST CANCER METASTATIC
     Dosage: 1500MG (500MG TABS) BID PO 14 DAYS ON THEN CONT: 7 DAYS OFF
     Route: 048
     Dates: start: 20110606

REACTIONS (1)
  - DIARRHOEA [None]
